FAERS Safety Report 10042849 (Version 3)
Quarter: 2014Q2

REPORT INFORMATION
  Report Type: Report from Study
  Country: US (occurrence: US)
  Receive Date: 20140327
  Receipt Date: 20140602
  Transmission Date: 20141212
  Serious: Yes (Hospitalization, Disabling)
  Sender: FDA-Public Use
  Company Number: PHEH2014US003750

PATIENT
  Age: 40 Year
  Sex: Female
  Weight: 65.3 kg

DRUGS (10)
  1. GILENYA [Suspect]
     Indication: RELAPSING-REMITTING MULTIPLE SCLEROSIS
     Dosage: 0.5 MG, QD
     Route: 048
     Dates: start: 20110224, end: 20110302
  2. GILENYA [Suspect]
     Dosage: 0.5 MG, QD
     Route: 048
     Dates: end: 201401
  3. XANAX [Concomitant]
     Indication: ANXIETY
     Dosage: 0.5 MG, PRN
     Route: 048
  4. ADDERALL [Concomitant]
     Indication: FATIGUE
     Dosage: 5 MG, BID
     Route: 048
  5. ABILIFY [Concomitant]
     Indication: DEPRESSION
     Dosage: 1.5 DF, DAILY
     Route: 048
  6. CELEXA [Concomitant]
     Indication: DEPRESSION
     Dosage: 40 MG, DAILY
     Route: 048
  7. NEURONTIN [Concomitant]
     Indication: PAIN
     Dosage: 600 MG, FOUR TIMES DAILY
     Route: 048
  8. MIRENA [Concomitant]
  9. SYNTHROID [Concomitant]
     Dosage: 75 UG, DAILY
     Route: 048
  10. TRAZODONE [Concomitant]
     Dosage: 150 MG, DAILY
     Route: 048

REACTIONS (9)
  - Fatigue [Not Recovered/Not Resolved]
  - Blood pressure decreased [Unknown]
  - Limb discomfort [Unknown]
  - Tremor [Unknown]
  - Tongue spasm [Unknown]
  - Muscle spasms [Unknown]
  - Respiratory rate increased [Unknown]
  - Nausea [Unknown]
  - Dizziness [Unknown]
